FAERS Safety Report 17458422 (Version 27)
Quarter: 2021Q2

REPORT INFORMATION
  Report Type: Report from Study
  Country: US (occurrence: US)
  Receive Date: 20200225
  Receipt Date: 20210621
  Transmission Date: 20210716
  Serious: Yes (Hospitalization, Other)
  Sender: FDA-Public Use
  Company Number: NVSC2020US048927

PATIENT
  Age: 45 Year
  Sex: Female
  Weight: 107.94 kg

DRUGS (12)
  1. TREPROSTINIL. [Suspect]
     Active Substance: TREPROSTINIL
     Indication: PULMONARY ARTERIAL HYPERTENSION
     Dosage: 60 NG/KG/MIN, CONT
     Route: 042
     Dates: start: 20190813
  2. TREPROSTINIL. [Suspect]
     Active Substance: TREPROSTINIL
     Dosage: UNK (60 NG/KG/MIN, CONT)
     Route: 042
     Dates: start: 20190813
  3. TREPROSTINIL. [Suspect]
     Active Substance: TREPROSTINIL
     Dosage: UNK (60 NG/KG/MIN, CONT)
     Route: 042
  4. ADEMPAS [Suspect]
     Active Substance: RIOCIGUAT
     Dosage: 1 MG, TID
     Route: 065
  5. ADEMPAS [Suspect]
     Active Substance: RIOCIGUAT
     Dosage: UNK
     Route: 065
     Dates: end: 20210303
  6. TREPROSTINIL. [Suspect]
     Active Substance: TREPROSTINIL
     Dosage: 60 NG/KG/MIN, CONT
     Route: 042
     Dates: start: 20190813
  7. ADEMPAS [Suspect]
     Active Substance: RIOCIGUAT
     Indication: PRODUCT USED FOR UNKNOWN INDICATION
     Dosage: UNK
     Route: 065
  8. TREPROSTINIL. [Suspect]
     Active Substance: TREPROSTINIL
     Dosage: UNK
     Route: 065
  9. REMODULIN [Suspect]
     Active Substance: TREPROSTINIL
     Indication: PRODUCT USED FOR UNKNOWN INDICATION
     Dosage: UNK
     Route: 065
  10. TREPROSTINIL. [Suspect]
     Active Substance: TREPROSTINIL
     Dosage: 60 NG/KG/MIN, CONT
     Route: 042
     Dates: start: 20190813
  11. TADALAFIL. [Suspect]
     Active Substance: TADALAFIL
     Indication: PRODUCT USED FOR UNKNOWN INDICATION
     Dosage: UNK
     Route: 065
  12. OPSUMIT [Suspect]
     Active Substance: MACITENTAN
     Indication: PRODUCT USED FOR UNKNOWN INDICATION
     Dosage: UNK
     Route: 065

REACTIONS (31)
  - Cardiac failure [Unknown]
  - Rash [Unknown]
  - Dehydration [Unknown]
  - Oedema [Unknown]
  - Insomnia [Unknown]
  - Pain in extremity [Unknown]
  - Dizziness [Unknown]
  - Myalgia [Unknown]
  - Fluid overload [Unknown]
  - Cluster headache [Unknown]
  - Dysstasia [Unknown]
  - Pulmonary arterial hypertension [Unknown]
  - Malaise [Unknown]
  - Infusion site extravasation [Unknown]
  - Hypotension [Unknown]
  - Post procedural pruritus [Unknown]
  - Cardiac output increased [Unknown]
  - Arthralgia [Unknown]
  - Product dose omission issue [Unknown]
  - Dyspnoea [Unknown]
  - Cardiac failure acute [Unknown]
  - Nausea [Unknown]
  - Pain [Unknown]
  - Muscle spasms [Unknown]
  - Pruritus [Unknown]
  - Infusion site pain [Unknown]
  - Migraine [Unknown]
  - Abdominal pain [Unknown]
  - Condition aggravated [Unknown]
  - Post procedural discomfort [Unknown]
  - Headache [Unknown]

NARRATIVE: CASE EVENT DATE: 20200206
